FAERS Safety Report 9938037 (Version 1)
Quarter: 2014Q1

REPORT INFORMATION
  Report Type: Report from Study
  Country: FR (occurrence: FR)
  Receive Date: 20140303
  Receipt Date: 20140303
  Transmission Date: 20141002
  Serious: Yes (Hospitalization)
  Sender: FDA-Public Use
  Company Number: FR-ROCHE-1354140

PATIENT
  Sex: Female

DRUGS (36)
  1. CORTANCYL [Concomitant]
     Route: 065
     Dates: start: 20130402
  2. RITUXIMAB [Suspect]
     Indication: RHEUMATOID ARTHRITIS
     Route: 041
     Dates: start: 20070813
  3. RITUXIMAB [Suspect]
     Route: 041
     Dates: start: 20070827
  4. RITUXIMAB [Suspect]
     Route: 041
     Dates: start: 20080506
  5. RITUXIMAB [Suspect]
     Route: 041
     Dates: start: 20080520
  6. RITUXIMAB [Suspect]
     Route: 041
     Dates: start: 20090930
  7. RITUXIMAB [Suspect]
     Route: 041
     Dates: start: 20091015
  8. RITUXIMAB [Suspect]
     Route: 041
     Dates: start: 20101206
  9. RITUXIMAB [Suspect]
     Route: 041
     Dates: start: 20101221
  10. RITUXIMAB [Suspect]
     Route: 041
     Dates: start: 20120314
  11. RITUXIMAB [Suspect]
     Route: 041
     Dates: start: 20120328
  12. RITUXIMAB [Suspect]
     Route: 041
     Dates: start: 20130319
  13. RITUXIMAB [Suspect]
     Route: 041
     Dates: start: 20130402
  14. METHOTREXATE [Concomitant]
     Route: 065
     Dates: start: 20070813
  15. METHOTREXATE [Concomitant]
     Route: 065
     Dates: start: 20070827
  16. METHOTREXATE [Concomitant]
     Route: 065
     Dates: start: 20080506
  17. METHOTREXATE [Concomitant]
     Route: 065
     Dates: start: 20080520
  18. METHOTREXATE [Concomitant]
     Dosage: 5MG/WEEK
     Route: 065
     Dates: start: 20090930
  19. METHOTREXATE [Concomitant]
     Dosage: 5MG/WEEK
     Route: 065
     Dates: start: 20091015
  20. METHOTREXATE [Concomitant]
     Dosage: 5MG/WEEK
     Route: 065
     Dates: start: 20101206
  21. METHOTREXATE [Concomitant]
     Dosage: 5MG/WEEK
     Route: 065
     Dates: start: 20101221
  22. METHOTREXATE [Concomitant]
     Dosage: 5MG/WEEK
     Route: 065
     Dates: start: 20120314
  23. METHOTREXATE [Concomitant]
     Dosage: 5MG/WEEK
     Route: 065
     Dates: start: 20120328
  24. METHOTREXATE [Concomitant]
     Route: 065
     Dates: start: 20130319
  25. METHOTREXATE [Concomitant]
     Route: 065
     Dates: start: 20130402
  26. CORTANCYL [Concomitant]
     Route: 065
     Dates: start: 20070813
  27. CORTANCYL [Concomitant]
     Route: 065
     Dates: start: 20070827
  28. CORTANCYL [Concomitant]
     Route: 065
     Dates: start: 20080506
  29. CORTANCYL [Concomitant]
     Route: 065
     Dates: start: 20080520
  30. CORTANCYL [Concomitant]
     Route: 065
     Dates: start: 20090930
  31. CORTANCYL [Concomitant]
     Route: 065
     Dates: start: 20091015
  32. CORTANCYL [Concomitant]
     Route: 065
     Dates: start: 20101206
  33. CORTANCYL [Concomitant]
     Route: 065
     Dates: start: 20101221
  34. CORTANCYL [Concomitant]
     Route: 065
     Dates: start: 20120314
  35. CORTANCYL [Concomitant]
     Route: 065
     Dates: start: 20120328
  36. CORTANCYL [Concomitant]
     Route: 065
     Dates: start: 20130319

REACTIONS (8)
  - Scoliosis [Unknown]
  - Dislocation of vertebra [Unknown]
  - Dislocation of vertebra [Unknown]
  - Acetabulum fracture [Recovering/Resolving]
  - Carpal tunnel syndrome [Not Recovered/Not Resolved]
  - Elbow deformity [Not Recovered/Not Resolved]
  - Neuropathy peripheral [Not Recovered/Not Resolved]
  - Abdominal pain upper [Not Recovered/Not Resolved]
